FAERS Safety Report 8966308 (Version 4)
Quarter: 2013Q2

REPORT INFORMATION
  Report Type: Report from Study
  Country: JP (occurrence: JP)
  Receive Date: 20121216
  Receipt Date: 20130424
  Transmission Date: 20140414
  Serious: Yes (Life-Threatening, Hospitalization, Other)
  Sender: FDA-Public Use
  Company Number: JP-BRISTOL-MYERS SQUIBB COMPANY-14901565

PATIENT
  Age: 49 Year
  Sex: Male

DRUGS (20)
  1. SPRYCEL [Suspect]
     Indication: CHRONIC MYELOID LEUKAEMIA
     Dosage: 13AG9.50X1MG/D-26DC-8MA,20X1MG/D-9MA-22MA10,20MG*1/2D:23MA.20MGX201SE10.10OC-28OC,29OT-01NV10
     Route: 048
     Dates: start: 20090620
  2. GANCICLOVIR [Suspect]
     Route: 042
  3. CICLOSPORIN [Concomitant]
     Indication: GRAFT VERSUS HOST DISEASE
     Dosage: FROMLN: INJ 100MG:21JUN10,03-05JUL10,90MG 06-16JUL.23AUG-13SEP10.22JUN-02JUL10.
     Route: 042
     Dates: start: 20100621, end: 20100913
  4. VFEND [Concomitant]
     Dosage: FROMLN: INJ
     Route: 042
  5. BAKTAR [Concomitant]
     Route: 048
  6. SANDOSTATIN [Concomitant]
     Dosage: FROMLN: INJ
     Route: 042
     Dates: start: 20091229, end: 20100124
  7. METHYLPREDNISONE [Concomitant]
     Dosage: FROMLN: INJ
     Route: 042
     Dates: start: 20091212, end: 20091214
  8. SODIUM SUCCINATE [Concomitant]
     Dosage: FROMLN: INJ
     Route: 042
     Dates: start: 20091212, end: 20091214
  9. CELLCEPT [Concomitant]
     Dosage: FORMLN: CAP
     Route: 048
     Dates: start: 20091210, end: 20100524
  10. PREDONINE [Concomitant]
     Dosage: FROMLN:INJ,PO,5MG/D 25JUN10,25OCT10-ONG?10MG/D,IT,22OCT09-22OCT09?10MG,IV:4FEB10-4JUN10
     Route: 042
     Dates: start: 20091022
  11. CRAVIT [Concomitant]
     Dosage: TAB
     Route: 048
     Dates: start: 20091016, end: 20091113
  12. VFEND [Concomitant]
     Dosage: TAB
     Route: 048
     Dates: start: 20091020, end: 20100312
  13. CIPROXAN [Concomitant]
  14. GANCICLOVIR [Concomitant]
     Dosage: INJ
     Route: 042
     Dates: start: 20091208, end: 20100527
  15. BAKTAR [Concomitant]
     Route: 048
     Dates: start: 20091104, end: 20100305
  16. SOL MELCORT [Concomitant]
     Dosage: 1DF=10-60MG/D.INJ
     Route: 042
     Dates: start: 20091128, end: 20100204
  17. ENDOXAN [Concomitant]
     Indication: CHRONIC MYELOID LEUKAEMIA
     Dosage: INJECTION
     Route: 042
     Dates: start: 20091107, end: 20091108
  18. METHOTREXATE [Concomitant]
     Route: 037
     Dates: start: 20091022, end: 20091022
  19. CYLOCIDE [Concomitant]
     Route: 037
     Dates: start: 20091022, end: 20091022
  20. ADONA [Concomitant]
     Indication: GINGIVAL BLEEDING
     Dosage: TABS
     Route: 048
     Dates: end: 20090626

REACTIONS (13)
  - White blood cell count decreased [Recovered/Resolved]
  - Neutropenia [Recovered/Resolved]
  - Diarrhoea [Recovering/Resolving]
  - Renal failure [Recovering/Resolving]
  - Gastrointestinal haemorrhage [Recovered/Resolved]
  - Pulmonary oedema [Recovered/Resolved]
  - Graft versus host disease [Recovering/Resolving]
  - Angina pectoris [Recovering/Resolving]
  - Vomiting [Recovering/Resolving]
  - Decreased appetite [Recovering/Resolving]
  - Anaemia [Recovering/Resolving]
  - Platelet count decreased [Recovering/Resolving]
  - Hepatic function abnormal [Not Recovered/Not Resolved]
